FAERS Safety Report 17635738 (Version 16)
Quarter: 2020Q4

REPORT INFORMATION
  Report Type: Spontaneous
  Country: DE (occurrence: DE)
  Receive Date: 20200406
  Receipt Date: 20201217
  Transmission Date: 20210113
  Serious: Yes (Life-Threatening, Hospitalization, Other)
  Sender: FDA-Public Use
  Company Number: DE-009507513-2004DEU000601

PATIENT
  Age: 69 Year
  Sex: Male
  Weight: 77 kg

DRUGS (26)
  1. RAMIPRIL. [Interacting]
     Active Substance: RAMIPRIL
     Indication: HYPERTENSION
     Dosage: 5 MG, Q12H
     Route: 065
     Dates: start: 201808
  2. INSULIN GLARGINE [Interacting]
     Active Substance: INSULIN GLARGINE
     Indication: DIABETES MELLITUS
     Dosage: 15 INTERNATIONAL UNIT, DAILY, IN THE EVENING
     Route: 065
     Dates: start: 201808
  3. JANUMET [Suspect]
     Active Substance: METFORMIN HYDROCHLORIDE\SITAGLIPTIN PHOSPHATE
     Indication: DIABETES MELLITUS
     Dosage: 2 DOSAGE FORM, QD,(ALSO REPORTED AS 1 DOSAGE FORM, DAILY(50/1000 MILLIGRAM), TABLET
     Route: 065
     Dates: start: 201808
  4. MILGAMMA PROTECT [Interacting]
     Active Substance: BENFOTIAMINE
     Indication: CARDIOVASCULAR DISORDER
  5. SPIRONOLACTONE. [Interacting]
     Active Substance: SPIRONOLACTONE
     Indication: CARDIAC DISORDER
     Dosage: 50 MG, QD
     Route: 048
     Dates: start: 20110506
  6. SIMVASTATIN. [Interacting]
     Active Substance: SIMVASTATIN
     Indication: BLOOD CHOLESTEROL ABNORMAL
     Dosage: 15 INTERNATIONAL UNIT, DAILY
     Route: 065
     Dates: start: 201808
  7. SIMVASTATIN. [Interacting]
     Active Substance: SIMVASTATIN
     Indication: GOUT
     Dosage: 10 MILLIGRAM, QD IN MORNING, DAILY, 1-0-0
     Route: 065
     Dates: start: 201808
  8. SIMVASTATIN. [Interacting]
     Active Substance: SIMVASTATIN
     Indication: DIABETES MELLITUS
     Dosage: 50 MG, DAILY (QD IN MORNING)
     Route: 065
     Dates: start: 201808
  9. SIMVASTATIN. [Interacting]
     Active Substance: SIMVASTATIN
     Indication: HYPERTENSION
     Dosage: 40 MG, 1X/DAY (AT NIGHT)/ DAILY
     Route: 048
     Dates: start: 201808
  10. TORSEMIDE. [Interacting]
     Active Substance: TORSEMIDE
     Indication: RENAL DISORDER
     Dosage: 10 MG, DAILY IN THE MORNING 1-0-0
     Route: 065
     Dates: start: 201808
  11. LEVETIRACETAM. [Concomitant]
     Active Substance: LEVETIRACETAM
     Indication: PRODUCT USED FOR UNKNOWN INDICATION
     Dosage: 1 DF, 2X/DAY(1-0-1)/BID
     Route: 065
  12. ELIQUIS [Interacting]
     Active Substance: APIXABAN
     Indication: CEREBROVASCULAR ACCIDENT PROPHYLAXIS
     Dosage: 5 MILLIGRAM, BID
     Route: 065
     Dates: start: 201808
  13. AMLODIPINE BESYLATE. [Interacting]
     Active Substance: AMLODIPINE BESYLATE
     Indication: HYPERTENSION
     Dosage: 5 MG, TWICE DAILY, 1-0-1
     Route: 065
     Dates: start: 201808
  14. ALLOPURINOL. [Interacting]
     Active Substance: ALLOPURINOL
     Indication: GOUT
     Dosage: 100 MG, DAILY
     Route: 065
     Dates: start: 201808
  15. ABASAGLAR [Interacting]
     Active Substance: INSULIN GLARGINE
     Indication: DIABETES MELLITUS
     Dosage: 15 INTERNATIONAL UNIT, QD
     Route: 065
     Dates: start: 201808
  16. ELIQUIS [Interacting]
     Active Substance: APIXABAN
     Indication: ATRIAL FIBRILLATION
  17. AVASTIN [Interacting]
     Active Substance: BEVACIZUMAB
     Indication: DIABETIC RETINAL OEDEMA
     Dosage: INJECTED IN THE RIGHT EYE 13:30
     Route: 031
     Dates: start: 20200115
  18. PROCORALAN [Interacting]
     Active Substance: IVABRADINE
     Indication: CARDIAC DISORDER
     Dosage: 7.5 MILLIGRAM, DAILY
     Route: 065
     Dates: start: 201808
  19. MILGAMMA PROTECT [Interacting]
     Active Substance: BENFOTIAMINE
     Indication: CEREBROVASCULAR ACCIDENT PROPHYLAXIS
     Dosage: 300 MG, 1X/DAY (QD)
     Route: 065
     Dates: start: 201808
  20. SIMVASTATIN. [Interacting]
     Active Substance: SIMVASTATIN
     Indication: CORONARY ARTERY DISEASE
     Dosage: 100 MG, DAILY
     Route: 065
     Dates: start: 201808
  21. SIMVASTATIN. [Interacting]
     Active Substance: SIMVASTATIN
     Indication: RENAL DISORDER
  22. SIMVASTATIN. [Interacting]
     Active Substance: SIMVASTATIN
     Indication: BLOOD CHOLESTEROL ABNORMAL
  23. PROCORALAN [Interacting]
     Active Substance: IVABRADINE
     Indication: CARDIAC DISORDER
  24. CARVEDILOL. [Interacting]
     Active Substance: CARVEDILOL
     Indication: CARDIAC DISORDER
     Dosage: 25 MG, Q12H, 1-0-1
     Route: 065
     Dates: start: 201808
  25. AVASTIN (ATORVASTATIN CALCIUM) [Interacting]
     Active Substance: ATORVASTATIN CALCIUM
     Indication: DIABETIC RETINAL OEDEMA
     Dosage: 1 DOSAGE FORM (INJECT IN THE RIGHT EYE AT 13.30)
     Route: 031
     Dates: start: 20200115
  26. SPIRONOLACTONE. [Interacting]
     Active Substance: SPIRONOLACTONE
     Indication: CORONARY ARTERY DISEASE
     Dosage: 1-0-0, 50 MG, ONCE DAILY IN THE MORNING
     Route: 048
     Dates: start: 201808

REACTIONS (9)
  - Drug interaction [Recovered/Resolved]
  - Off label use [Unknown]
  - Eye movement disorder [Recovered/Resolved]
  - Movement disorder [Recovered/Resolved]
  - Product use issue [Recovered/Resolved]
  - Oculogyric crisis [Recovered/Resolved]
  - Seizure [Recovered/Resolved]
  - Status epilepticus [Recovering/Resolving]
  - Muscle spasms [Recovered/Resolved]

NARRATIVE: CASE EVENT DATE: 201808
